FAERS Safety Report 7106709-3 (Version None)
Quarter: 2010Q4

REPORT INFORMATION
  Report Type: 
  Country: None (occurrence: None)
  Receive Date: 20101116
  Receipt Date: 20100818
  Transmission Date: 20110411
  Serious: No
  Sender: FDA-Public Use
  Company Number: US-ABBOTT-10P-163-0664618-00

PATIENT
  Sex: Female
  Weight: 113.5 kg

DRUGS (1)
  1. SIMCOR [Suspect]
     Indication: LIPIDS INCREASED
     Dosage: 500MG/20MG AT BEDTIME
     Dates: start: 20100811

REACTIONS (3)
  - DECREASED APPETITE [None]
  - FLUSHING [None]
  - LIPIDS INCREASED [None]
